FAERS Safety Report 6811465-X (Version None)
Quarter: 2010Q2

REPORT INFORMATION
  Report Type: 
  Country: None (occurrence: None)
  Receive Date: 20100629
  Receipt Date: 20100629
  Transmission Date: 20101027
  Serious: Yes (Hospitalization)
  Sender: FDA-Public Use
  Company Number: None

PATIENT
  Age: 12 Year
  Sex: Male
  Weight: 75.8 kg

DRUGS (2)
  1. PEGASPARGASE 750 UNITS/ML ENZON PHARMACEUTICAL [Suspect]
     Dosage: 4500 UNITS ONCE IM
     Route: 030
     Dates: start: 20100628, end: 20100628
  2. PEGASPARGASE 750 UNITS/ML ENZON PHARMACEUICAL [Suspect]

REACTIONS (2)
  - DRUG HYPERSENSITIVITY [None]
  - ELECTROCARDIOGRAM QT PROLONGED [None]
